FAERS Safety Report 10744589 (Version 1)
Quarter: 2015Q1

REPORT INFORMATION
  Report Type: Spontaneous
  Country: US (occurrence: None)
  Receive Date: 20150126
  Receipt Date: 20150126
  Transmission Date: 20150721
  Serious: Yes (Other)
  Sender: FDA-Public Use
  Company Number: None

PATIENT
  Age: 52 Year
  Sex: Female
  Weight: 58.97 kg

DRUGS (1)
  1. DILTIAZEM [Suspect]
     Active Substance: DILTIAZEM
     Indication: BLOOD PRESSURE ABNORMAL
     Dosage: 1 PILL  THREE TIMES DAILY TAKEN BY MOUTH
     Route: 048
     Dates: start: 20150117, end: 20150122

REACTIONS (7)
  - Hypoaesthesia [None]
  - Dizziness [None]
  - Visual acuity reduced [None]
  - Nausea [None]
  - Dyspnoea [None]
  - Decreased activity [None]
  - Malaise [None]

NARRATIVE: CASE EVENT DATE: 20150122
